FAERS Safety Report 5892374-X (Version None)
Quarter: 2008Q3

REPORT INFORMATION
  Report Type: 
  Country: None (occurrence: None)
  Receive Date: 20080918
  Receipt Date: 20080918
  Transmission Date: 20090109
  Serious: Yes (Life-Threatening, Disabling)
  Sender: FDA-Public Use
  Company Number: None

PATIENT
  Age: 43 Year
  Sex: Female
  Weight: 68.0396 kg

DRUGS (1)
  1. BOTOX COSMETIC [Suspect]
     Indication: SKIN COSMETIC PROCEDURE
     Dosage: 200 UNITS  ONCE SQ
     Route: 058
     Dates: start: 20080904, end: 20080904

REACTIONS (8)
  - ARTHRALGIA [None]
  - BACK PAIN [None]
  - HEADACHE [None]
  - INFLUENZA LIKE ILLNESS [None]
  - INJECTION SITE PAIN [None]
  - INSOMNIA [None]
  - PAIN IN EXTREMITY [None]
  - PNEUMONIA [None]
